FAERS Safety Report 10581771 (Version 1)
Quarter: 2014Q4

REPORT INFORMATION
  Report Type: Report from Study
  Country: US (occurrence: US)
  Receive Date: 20141113
  Receipt Date: 20141113
  Transmission Date: 20150529
  Serious: Yes (Other)
  Sender: FDA-Public Use
  Company Number: US-SA-2014SA153687

PATIENT
  Age: 60 Year
  Sex: Male

DRUGS (1)
  1. LANTUS [Suspect]
     Active Substance: INSULIN GLARGINE
     Dosage: DOSE:60 UNIT(S)
     Route: 065

REACTIONS (10)
  - Cardiac disorder [Unknown]
  - Arterial occlusive disease [Unknown]
  - Drug administration error [Unknown]
  - Gout [Unknown]
  - Myocardial infarction [Unknown]
  - Vein collapse [Unknown]
  - Chronic kidney disease [Unknown]
  - Stent malfunction [Unknown]
  - Underdose [Unknown]
  - Angina pectoris [Unknown]

NARRATIVE: CASE EVENT DATE: 201012
